FAERS Safety Report 5688353-8 (Version None)
Quarter: 2008Q1

REPORT INFORMATION
  Report Type: 
  Country: None (occurrence: None)
  Receive Date: 20080328
  Receipt Date: 20080328
  Transmission Date: 20080703
  Serious: Yes (Life-Threatening, Hospitalization)
  Sender: FDA-Public Use
  Company Number: None

PATIENT
  Age: 59 Year
  Sex: Male

DRUGS (2)
  1. AZITHROMYCIN [Suspect]
     Indication: CHRONIC OBSTRUCTIVE PULMONARY DISEASE
     Dosage: 500MG EVERY DAY IV
     Route: 042
     Dates: start: 20080225, end: 20080225
  2. AZITHROMYCIN [Suspect]
     Indication: PNEUMONIA
     Dosage: 500MG EVERY DAY IV
     Route: 042
     Dates: start: 20080225, end: 20080225

REACTIONS (1)
  - ANAPHYLACTIC REACTION [None]
